FAERS Safety Report 5446459-2 (Version None)
Quarter: 2007Q3

REPORT INFORMATION
  Report Type: 
  Country: None (occurrence: None)
  Receive Date: 20070907
  Receipt Date: 20070828
  Transmission Date: 20080115
  Serious: Yes (Life-Threatening, Hospitalization, Congenital Anomaly)
  Sender: FDA-Public Use
  Company Number: FR-SANOFI-SYNTHELABO-A02200702537

PATIENT
  Sex: Female

DRUGS (2)
  1. KERLONE [Suspect]
     Route: 064
     Dates: end: 20061126
  2. PROPRANOLOL HYDROCHLORIDE [Suspect]
     Dosage: 60 MG
     Route: 064
     Dates: start: 20061126, end: 20070101

REACTIONS (4)
  - BRADYCARDIA NEONATAL [None]
  - DRUG EXPOSURE DURING PREGNANCY [None]
  - FOETAL GROWTH RETARDATION [None]
  - HYPOGLYCAEMIA NEONATAL [None]
